FAERS Safety Report 10008768 (Version 2)
Quarter: 2014Q1

REPORT INFORMATION
  Report Type: Spontaneous
  Country: US (occurrence: US)
  Receive Date: 20140312
  Receipt Date: 20140312
  Transmission Date: 20141002
  Serious: No
  Sender: FDA-Public Use
  Company Number: US-INCYTE CORPORATION-2012IN000687

PATIENT
  Age: 77 Year
  Sex: Male
  Weight: 91.7 kg

DRUGS (6)
  1. JAKAFI [Suspect]
     Indication: MYELOFIBROSIS
     Dosage: 25 MG, BID
     Route: 048
     Dates: start: 20120315
  2. ALLOPURINOL [Concomitant]
  3. VITAMIN D [Concomitant]
  4. ATENOLOL [Concomitant]
  5. NORVASC [Concomitant]
  6. PREDNISONE [Concomitant]

REACTIONS (4)
  - Gastrooesophageal reflux disease [Recovered/Resolved]
  - Abdominal discomfort [Recovered/Resolved]
  - Haemorrhage subcutaneous [Recovered/Resolved]
  - Contusion [Recovered/Resolved]
